FAERS Safety Report 10982506 (Version 4)
Quarter: 2015Q3

REPORT INFORMATION
  Report Type: Spontaneous
  Country: JP (occurrence: None)
  Receive Date: 20150401
  Receipt Date: 20150901
  Transmission Date: 20151125
  Serious: Yes (Death)
  Sender: FDA-Public Use
  Company Number: 2015FE01038

PATIENT
  Age: 8 Decade
  Sex: Male
  Weight: 53 kg

DRUGS (5)
  1. GASTER (OMEPAZOLE) [Concomitant]
  2. CASODEX [Concomitant]
     Active Substance: BICALUTAMIDE
  3. ODYNE (FLUTAMIDE) [Concomitant]
  4. PREDONINE (PREDNISOLONE) [Concomitant]
  5. GONAX (DEGARELIX) POWDER AND SOLVENT FOR SOLUTION FOR INJECTION [Suspect]
     Active Substance: DEGARELIX
     Indication: PROSTATE CANCER
     Route: 058
     Dates: start: 20130606, end: 20130606

REACTIONS (3)
  - Concomitant disease progression [None]
  - Disease complication [None]
  - Pneumonia [None]

NARRATIVE: CASE EVENT DATE: 20150221
